FAERS Safety Report 10029353 (Version 5)
Quarter: 2014Q2

REPORT INFORMATION
  Report Type: Report from Study
  Country: US (occurrence: US)
  Receive Date: 20140321
  Receipt Date: 20140408
  Transmission Date: 20141212
  Serious: Yes (Hospitalization)
  Sender: FDA-Public Use
  Company Number: PHEH2014US001165

PATIENT
  Age: 70 Year
  Sex: Female
  Weight: 75.7 kg

DRUGS (19)
  1. GILENYA [Suspect]
     Indication: MULTIPLE SCLEROSIS
     Dosage: 0.5 MG, QD
     Route: 048
     Dates: start: 20140110, end: 20140131
  2. VITAMIN C [Concomitant]
     Dosage: 1000 UG, QD
     Route: 048
  3. LIORESAL [Concomitant]
     Dosage: 10 MG, TID
     Route: 048
  4. CALCIUM ANTACID [Concomitant]
     Dosage: 400 MG, QD
     Route: 048
  5. ZYRTEC [Concomitant]
     Dosage: 10 MG, QD
     Route: 048
  6. VITAMIN D3 [Concomitant]
     Dosage: 500000 U, QW
     Route: 048
  7. VITAMIN B12 [Concomitant]
     Dosage: 1000 UG, UNK
     Route: 060
  8. DEXILANT [Concomitant]
     Dosage: 60 MG, UNK
     Route: 048
  9. NEURONTIN [Concomitant]
     Dosage: 600 MG, QID
     Route: 048
  10. HYDRODIURIL [Concomitant]
     Dosage: 25 MG, QD
     Route: 048
  11. MOTRIN [Concomitant]
     Dosage: 600 MG, QID
     Route: 048
  12. ACIDOPHILUS [Concomitant]
  13. XALATAN [Concomitant]
     Dosage: 1 DRP, UNK
  14. KEPPRA [Concomitant]
     Dosage: 250 MG, BID
     Route: 048
  15. PRINPARL [Concomitant]
     Dosage: 10 MG, QD
     Route: 048
  16. SINGULAIR [Concomitant]
     Dosage: 10 MG, QD
     Route: 048
  17. PRAVACHOL [Concomitant]
     Dosage: 40 MG, QD
     Route: 048
  18. ZANTAC [Concomitant]
     Dosage: 300 MG, QD
     Route: 048
  19. DETROL LA [Concomitant]
     Dosage: 4 MG, QD
     Route: 048

REACTIONS (16)
  - Refractory anaemia with ringed sideroblasts [Unknown]
  - Pancytopenia [Recovering/Resolving]
  - Reflux gastritis [Unknown]
  - Nausea [Recovering/Resolving]
  - Vomiting [Recovering/Resolving]
  - Multiple sclerosis relapse [Unknown]
  - Delirium [Unknown]
  - Diplopia [Not Recovered/Not Resolved]
  - Vision blurred [Recovering/Resolving]
  - Pain [Unknown]
  - Pyrexia [Unknown]
  - Chills [Unknown]
  - Carotid artery aneurysm [Unknown]
  - Somnolence [Recovered/Resolved]
  - Feeling abnormal [Recovered/Resolved]
  - Drug ineffective [Unknown]
